FAERS Safety Report 6663476-5 (Version None)
Quarter: 2010Q1

REPORT INFORMATION
  Report Type: 
  Country: None (occurrence: None)
  Receive Date: 20100330
  Receipt Date: 20100330
  Transmission Date: 20100710
  Serious: Yes (Other)
  Sender: FDA-Public Use
  Company Number: None

PATIENT
  Age: 40 Year
  Sex: Female
  Weight: 60.3284 kg

DRUGS (2)
  1. LOESTRIN 24 FE [Suspect]
     Indication: MENSTRUAL CYCLE MANAGEMENT
     Dosage: 1 TABLET DAILY PO
     Route: 048
     Dates: start: 20100224, end: 20100316
  2. LOESTRIN 24 FE [Suspect]
     Indication: TREATMENT FAILURE
     Dosage: 1 TABLET DAILY PO
     Route: 048
     Dates: start: 20100224, end: 20100316

REACTIONS (4)
  - HALLUCINATION [None]
  - HOT FLUSH [None]
  - INSOMNIA [None]
  - PANIC ATTACK [None]
